FAERS Safety Report 10871904 (Version 1)
Quarter: 2015Q1

REPORT INFORMATION
  Report Type: Spontaneous
  Country: US (occurrence: None)
  Receive Date: 20150223
  Receipt Date: 20150223
  Transmission Date: 20150721
  Serious: Yes (Disabling)
  Sender: FDA-Public Use
  Company Number: None

PATIENT
  Age: 49 Year
  Sex: Male
  Weight: 74.84 kg

DRUGS (7)
  1. SOMA [Concomitant]
     Active Substance: CARISOPRODOL
  2. OTC VITAMINS [Concomitant]
  3. FENTYNAL TRANSDERMAL PATCH [Concomitant]
  4. OXYCODONE [Concomitant]
     Active Substance: OXYCODONE
  5. METHOCARBAMOL 750 MG RX BAXIN [Suspect]
     Active Substance: METHOCARBAMOL
     Indication: MYALGIA
     Dosage: 1 PILL 4 X PER DAY   FOUR TIMES DAILY   TAKEN BY MOUTH
     Route: 048
     Dates: start: 20150129, end: 20150220
  6. METHOCARBAMOL 750 MG RX BAXIN [Suspect]
     Active Substance: METHOCARBAMOL
     Indication: BONE PAIN
     Dosage: 1 PILL 4 X PER DAY   FOUR TIMES DAILY   TAKEN BY MOUTH
     Route: 048
     Dates: start: 20150129, end: 20150220
  7. DIAZAPAM 10 MG GEL [Concomitant]
     Active Substance: DIAZEPAM

REACTIONS (4)
  - Cognitive disorder [None]
  - Drug interaction [None]
  - Panic reaction [None]
  - Nightmare [None]

NARRATIVE: CASE EVENT DATE: 20150216
